FAERS Safety Report 24048472 (Version 1)
Quarter: 2024Q3

REPORT INFORMATION
  Report Type: Spontaneous
  Country: US (occurrence: US)
  Receive Date: 20240704
  Receipt Date: 20240704
  Transmission Date: 20241016
  Serious: No
  Sender: ALKEM
  Company Number: US-ALKEM LABORATORIES LIMITED-US-ALKEM-2024-05771

PATIENT
  Age: 67 Year
  Sex: Male

DRUGS (2)
  1. CINACALCET [Suspect]
     Active Substance: CINACALCET
     Indication: Hypercalcaemia
     Dosage: 30 MILLIGRAM, BID
     Route: 048
  2. CINACALCET [Suspect]
     Active Substance: CINACALCET
     Indication: Parathyroid disorder
     Dosage: 30 MILLIGRAM, QD
     Route: 048

REACTIONS (1)
  - Hypocalcaemia [Recovered/Resolved]
